FAERS Safety Report 17272400 (Version 1)
Quarter: 2020Q1

REPORT INFORMATION
  Report Type: Spontaneous
  Country: US (occurrence: US)
  Receive Date: 20191223
  Receipt Date: 20191223
  Transmission Date: 20200409
  Serious: No
  Sender: FDA-Public Use
  Company Number: None

PATIENT
  Age: 31 Year
  Sex: Male

DRUGS (1)
  1. TRAZODONE (TRAZODONE HCL 100MG TAB) [Suspect]
     Active Substance: TRAZODONE HYDROCHLORIDE
     Route: 048
     Dates: start: 20191121, end: 20191218

REACTIONS (1)
  - Priapism [None]

NARRATIVE: CASE EVENT DATE: 20191218
